FAERS Safety Report 19761110 (Version 1)
Quarter: 2021Q3

REPORT INFORMATION
  Report Type: Spontaneous
  Country: US (occurrence: US)
  Receive Date: 20210830
  Receipt Date: 20210830
  Transmission Date: 20211014
  Serious: Yes (Other)
  Sender: FDA-Public Use
  Company Number: US-GLAXOSMITHKLINE-US2021GSK181341

PATIENT
  Sex: Female

DRUGS (18)
  1. ZANTAC [Suspect]
     Active Substance: RANITIDINE HYDROCHLORIDE
     Indication: ABDOMINAL DISCOMFORT
     Dosage: 300 MG, QD
     Route: 065
     Dates: start: 200906, end: 201908
  2. ZANTAC [Suspect]
     Active Substance: RANITIDINE HYDROCHLORIDE
     Indication: APPENDIX DISORDER
  3. RANITIDINE. [Suspect]
     Active Substance: RANITIDINE
     Indication: APPENDIX DISORDER
  4. ZANTAC [Suspect]
     Active Substance: RANITIDINE HYDROCHLORIDE
     Indication: ABDOMINAL DISCOMFORT
     Dosage: 300 MG, QD
     Route: 065
     Dates: start: 200906, end: 201908
  5. RANITIDINE. [Suspect]
     Active Substance: RANITIDINE
     Indication: APPENDIX DISORDER
  6. RANITIDINE HYDROCHLORIDE. [Suspect]
     Active Substance: RANITIDINE HYDROCHLORIDE
     Indication: ABDOMINAL DISCOMFORT
     Dosage: 50 MG/ML, QD
     Route: 065
     Dates: start: 200907, end: 201908
  7. ZANTAC [Suspect]
     Active Substance: RANITIDINE HYDROCHLORIDE
     Indication: APPENDIX DISORDER
  8. ZANTAC [Suspect]
     Active Substance: RANITIDINE HYDROCHLORIDE
     Indication: ABDOMINAL DISCOMFORT
     Dosage: 50 MG/ML, QD
     Route: 065
     Dates: start: 200907, end: 201908
  9. RANITIDINE CAPSULE [Suspect]
     Active Substance: RANITIDINE
     Indication: ABDOMINAL DISCOMFORT
     Dosage: 300 MG, QD
     Route: 065
     Dates: start: 200906, end: 201908
  10. ZANTAC [Suspect]
     Active Substance: RANITIDINE HYDROCHLORIDE
     Indication: APPENDIX DISORDER
  11. RANITIDINE. [Suspect]
     Active Substance: RANITIDINE
     Indication: ABDOMINAL DISCOMFORT
     Dosage: 300 MG, QD
     Route: 065
     Dates: start: 200907, end: 201908
  12. RANITIDINE HYDROCHLORIDE. [Suspect]
     Active Substance: RANITIDINE HYDROCHLORIDE
     Indication: APPENDIX DISORDER
  13. ZANTAC [Suspect]
     Active Substance: RANITIDINE HYDROCHLORIDE
     Indication: ABDOMINAL DISCOMFORT
     Dosage: 300 MG, QD
     Route: 065
     Dates: start: 200906, end: 201908
  14. ZANTAC [Suspect]
     Active Substance: RANITIDINE HYDROCHLORIDE
     Indication: APPENDIX DISORDER
  15. RANITIDINE. [Suspect]
     Active Substance: RANITIDINE
     Indication: APPENDIX DISORDER
  16. RANITIDINE. [Suspect]
     Active Substance: RANITIDINE
     Indication: ABDOMINAL DISCOMFORT
     Dosage: 300 MG, QD
     Route: 065
     Dates: start: 200907, end: 201908
  17. RANITIDINE. [Suspect]
     Active Substance: RANITIDINE
     Indication: ABDOMINAL DISCOMFORT
     Dosage: 300 MG, QD
     Route: 065
     Dates: start: 200907, end: 201908
  18. RANITIDINE CAPSULE [Suspect]
     Active Substance: RANITIDINE
     Indication: APPENDIX DISORDER
     Dosage: 300 MG, QD
     Route: 065
     Dates: start: 200907, end: 201908

REACTIONS (1)
  - Colorectal cancer [Unknown]
